FAERS Safety Report 6128411-7 (Version None)
Quarter: 2009Q1

REPORT INFORMATION
  Report Type: 
  Country: None (occurrence: None)
  Receive Date: 20090323
  Receipt Date: 20090309
  Transmission Date: 20090719
  Serious: Yes (Death)
  Sender: FDA-Public Use
  Company Number: US-ROCHE-622782

PATIENT

DRUGS (7)
  1. TICLOPIDINE HCL [Suspect]
     Indication: ANTIPLATELET THERAPY
     Dosage: INITIAL DOSE IMMEDIATELY BEFORE STENT IMPLANTATION PROCEDURE
     Route: 065
  2. TICLOPIDINE HCL [Suspect]
     Dosage: ADMINISTERED ON THE EVENING OF STENT IMPLANTATION
     Route: 065
  3. TICLOPIDINE HCL [Suspect]
     Route: 065
  4. HEPARIN SODIUM [Suspect]
     Indication: DRUG USE FOR UNKNOWN INDICATION
     Dosage: WEIGHT ADJUSTED DOSE: 100 U/KG; GIVEN DURING STENT IMPLANTATION PROCEDURE; ROUTE: BOLUS
     Route: 050
  5. HEPARIN SODIUM [Suspect]
     Dosage: ADDITIONAL DOSE  250-350 SECONDS TO MAINTAIN ACTIVATED CLOTTING TIME
     Route: 050
  6. ASPIRIN [Suspect]
     Indication: ANTIPLATELET THERAPY
     Dosage: MORE THAN OR EQUAL TO 325 MG BEFORE/DURING STENT IMPLANTATION PROCEDURE
     Route: 065
  7. ASPIRIN [Suspect]
     Route: 065

REACTIONS (1)
  - THROMBOSIS IN DEVICE [None]
